FAERS Safety Report 6980617-0 (Version None)
Quarter: 2010Q3

REPORT INFORMATION
  Report Type: 
  Country: None (occurrence: None)
  Receive Date: 20100914
  Receipt Date: 20100911
  Transmission Date: 20110219
  Serious: Yes (Death)
  Sender: FDA-Public Use
  Company Number: IT-BRACCO-000882

PATIENT
  Sex: Female

DRUGS (3)
  1. MULTIHANCE [Suspect]
     Indication: OVARIAN CANCER
     Dosage: 0.2 ML/KG
     Route: 042
     Dates: start: 20100910, end: 20100910
  2. MULTIHANCE [Suspect]
     Indication: METASTASES TO PERITONEUM
     Dosage: 0.2 ML/KG
     Route: 042
     Dates: start: 20100910, end: 20100910
  3. MULTIHANCE [Suspect]
     Indication: NUCLEAR MAGNETIC RESONANCE IMAGING
     Dosage: 0.2 ML/KG
     Route: 042
     Dates: start: 20100910, end: 20100910

REACTIONS (3)
  - ABDOMINAL PAIN [None]
  - MALAISE [None]
  - SHOCK [None]
